FAERS Safety Report 7581342-8 (Version None)
Quarter: 2011Q2

REPORT INFORMATION
  Report Type: 
  Country: None (occurrence: None)
  Receive Date: 20110629
  Receipt Date: 20110620
  Transmission Date: 20111010
  Serious: Yes (Hospitalization, Other)
  Sender: FDA-Public Use
  Company Number: US-BAXTER-2011BH020363

PATIENT
  Age: 65 Year
  Sex: Male
  Weight: 81 kg

DRUGS (22)
  1. HEPARIN SODIUM 1,000 UNITS AND SODIUM CHLORIDE 0.9% [Suspect]
     Indication: PRODUCT USED FOR UNKNOWN INDICATION
     Route: 065
     Dates: start: 20110114, end: 20110114
  2. FENTANYL CITRATE [Suspect]
     Route: 042
     Dates: start: 20110115, end: 20110115
  3. MORPHINE [Suspect]
     Indication: ANGINA PECTORIS
     Route: 042
     Dates: start: 20110114, end: 20110114
  4. BLINDED THERAPY [Suspect]
     Route: 065
     Dates: start: 20110114
  5. GLUCOTROL [Concomitant]
     Indication: PRODUCT USED FOR UNKNOWN INDICATION
     Route: 065
  6. VERPAMIL HCL [Concomitant]
     Indication: PRODUCT USED FOR UNKNOWN INDICATION
     Route: 065
     Dates: start: 20110114, end: 20110114
  7. NITROGLYCERIN [Concomitant]
     Indication: PRODUCT USED FOR UNKNOWN INDICATION
     Route: 065
     Dates: start: 20110114, end: 20110114
  8. BLINDED THERAPY [Suspect]
     Route: 048
     Dates: start: 20110114
  9. SOLU-MEDROL [Concomitant]
     Indication: PRODUCT USED FOR UNKNOWN INDICATION
     Route: 065
     Dates: start: 20110114, end: 20110114
  10. FENTANYL CITRATE [Suspect]
     Indication: PAIN
     Route: 042
     Dates: start: 20110114, end: 20110114
  11. GLUCOPHAGE [Concomitant]
     Indication: PRODUCT USED FOR UNKNOWN INDICATION
     Route: 065
  12. NEXIUM [Concomitant]
     Indication: PRODUCT USED FOR UNKNOWN INDICATION
     Route: 065
     Dates: start: 20060523
  13. LIPITOR [Concomitant]
     Indication: PRODUCT USED FOR UNKNOWN INDICATION
     Route: 065
  14. MOXIFLOXACIN [Concomitant]
     Indication: PRODUCT USED FOR UNKNOWN INDICATION
     Route: 065
     Dates: start: 20110114, end: 20110114
  15. ASPIRIN [Concomitant]
     Indication: PRODUCT USED FOR UNKNOWN INDICATION
     Route: 065
     Dates: start: 20000118
  16. ALBUTEROL SULFATE AUTOHALER [Concomitant]
     Indication: PRODUCT USED FOR UNKNOWN INDICATION
     Route: 065
     Dates: start: 20110114, end: 20110115
  17. BIVALIRUDIN [Suspect]
     Indication: SURGERY
     Route: 065
     Dates: start: 20110114
  18. ANTIBIOTICS [Concomitant]
     Indication: PRODUCT USED FOR UNKNOWN INDICATION
     Route: 042
     Dates: start: 20110114
  19. VICODIN [Concomitant]
     Indication: PRODUCT USED FOR UNKNOWN INDICATION
     Route: 065
     Dates: start: 20071030
  20. MIDAZOLAM HYDROCHLORIDE [Suspect]
     Indication: ANXIETY
     Route: 042
     Dates: start: 20110114, end: 20110114
  21. BLINDED THERAPY [Suspect]
     Indication: PRODUCT USED FOR UNKNOWN INDICATION
     Route: 065
     Dates: start: 20110114
  22. METOPROLOL TARTRATE [Concomitant]
     Indication: PRODUCT USED FOR UNKNOWN INDICATION
     Route: 065
     Dates: start: 20081112

REACTIONS (4)
  - MENTAL STATUS CHANGES [None]
  - AGITATION [None]
  - CHRONIC OBSTRUCTIVE PULMONARY DISEASE [None]
  - HALLUCINATION [None]
